FAERS Safety Report 4931982-7 (Version None)
Quarter: 2006Q1

REPORT INFORMATION
  Report Type: 
  Country: None (occurrence: None)
  Receive Date: 20060303
  Receipt Date: 20060228
  Transmission Date: 20060701
  Serious: Yes (Life-Threatening)
  Sender: FDA-Public Use
  Company Number: CL-GLAXOSMITHKLINE-A0595795A

PATIENT
  Age: 15 Year
  Sex: Male

DRUGS (2)
  1. SERETIDE [Suspect]
     Indication: ASTHMA
     Route: 055
     Dates: start: 20030201
  2. OMEPRAZOLE [Concomitant]
     Route: 048

REACTIONS (3)
  - ADVERSE DRUG REACTION [None]
  - SCHIZOPHRENIA [None]
  - SUICIDAL IDEATION [None]
